FAERS Safety Report 13304739 (Version 1)
Quarter: 2017Q1

REPORT INFORMATION
  Report Type: Spontaneous
  Country: JP (occurrence: JP)
  Receive Date: 20170308
  Receipt Date: 20170308
  Transmission Date: 20170428
  Serious: Yes (Hospitalization)
  Sender: FDA-Public Use
  Company Number: JP-ACCORD-048934

PATIENT
  Age: 66 Year
  Sex: Male

DRUGS (5)
  1. TEGAFUR/GIMERACIL/OTERACIL POTASSIUM [Suspect]
     Active Substance: GIMERACIL\OTERACIL\TEGAFUR
     Indication: RECTAL CANCER
     Dosage: DAY 1 TO DAY 15 MORNING, EVERY 3 WEEKS
  2. CAPECITABINE. [Suspect]
     Active Substance: CAPECITABINE
     Indication: RECTAL CANCER
     Dosage: DAY 1 EVENING TO DAY 15 MORNING, EVERY 3 WEEKS
  3. IRINOTECAN [Suspect]
     Active Substance: IRINOTECAN
     Indication: RECTAL CANCER
     Dosage: DAY 1
  4. BEVACIZUMAB [Suspect]
     Active Substance: BEVACIZUMAB
     Indication: RECTAL CANCER
  5. OXALIPLATIN. [Suspect]
     Active Substance: OXALIPLATIN
     Indication: RECTAL CANCER
     Dosage: DAY 1

REACTIONS (4)
  - Necrotising fasciitis [Unknown]
  - Escherichia test positive [None]
  - Bacterial test positive [None]
  - Bacteroides test positive [None]
